FAERS Safety Report 10034899 (Version 2)
Quarter: 2014Q2

REPORT INFORMATION
  Report Type: Spontaneous
  Country: JP (occurrence: None)
  Receive Date: 20140321
  Receipt Date: 20140407
  Transmission Date: 20141212
  Serious: Yes (Hospitalization)
  Sender: FDA-Public Use
  Company Number: SP07617

PATIENT
  Age: 71 Year
  Sex: Female

DRUGS (1)
  1. MOVIPREP (SOLUTION) [Suspect]
     Indication: BOWEL PREPARATION
     Dosage: (1 LIT), ORAL
     Route: 048
     Dates: start: 20140307, end: 20140307

REACTIONS (7)
  - Ileus paralytic [None]
  - Abdominal pain [None]
  - Vomiting [None]
  - Loss of consciousness [None]
  - Ileus spastic [None]
  - Nausea [None]
  - Blood glucose increased [None]
